FAERS Safety Report 10230574 (Version 1)
Quarter: 2014Q2

REPORT INFORMATION
  Report Type: Spontaneous
  Country: US (occurrence: US)
  Receive Date: 20140611
  Receipt Date: 20140611
  Transmission Date: 20141212
  Serious: No
  Sender: FDA-Public Use
  Company Number: US-INCYTE CORPORATION-2014IN001227

PATIENT
  Sex: 0

DRUGS (21)
  1. JAKAFI [Suspect]
     Indication: POLYCYTHAEMIA VERA
     Dosage: 20 MG, BID
     Route: 048
     Dates: start: 20140112
  2. NEUROTIN                           /00949202/ [Concomitant]
  3. IMDUR [Concomitant]
  4. CIPRO                              /00697201/ [Concomitant]
  5. BUSPIRONE [Concomitant]
  6. MELOXICAM [Concomitant]
  7. ASPIRIN [Concomitant]
  8. METOPROLOL [Concomitant]
  9. DOCUSATE SODIUM [Concomitant]
  10. SUDAFED                            /00076302/ [Concomitant]
  11. GUAIFENESIN [Concomitant]
  12. LORATADINE [Concomitant]
  13. VITAMIN E                          /00110501/ [Concomitant]
  14. MAGNESIUM [Concomitant]
  15. GLUCOSAMINE [Concomitant]
  16. FISH OIL [Concomitant]
  17. LUTEIN                             /01638501/ [Concomitant]
  18. VITAMIN D3 [Concomitant]
  19. VITAMIN B COMPLEX [Concomitant]
  20. MULTIVITAMINS [Concomitant]
  21. LUVOX [Concomitant]

REACTIONS (1)
  - Back pain [Unknown]
